FAERS Safety Report 7664811-1 (Version None)
Quarter: 2011Q3

REPORT INFORMATION
  Report Type: 
  Country: None (occurrence: None)
  Receive Date: 20110806
  Receipt Date: 20110128
  Transmission Date: 20111222
  Serious: No
  Sender: FDA-Public Use
  Company Number: US-ABBOTT-11P-163-0701276-00

PATIENT
  Sex: Male
  Weight: 95.34 kg

DRUGS (3)
  1. NIASPAN [Suspect]
     Indication: HIGH DENSITY LIPOPROTEIN DECREASED
     Dosage: 2000MG AT BEDTIME
     Dates: start: 20100301, end: 20100501
  2. ASPIRIN [Concomitant]
     Indication: PRODUCT USED FOR UNKNOWN INDICATION
     Dosage: 3 TABLETS AT BEDTIME
     Route: 048
  3. NIASPAN [Suspect]
     Dates: start: 20101101

REACTIONS (1)
  - FLUSHING [None]
